FAERS Safety Report 14919019 (Version 12)
Quarter: 2020Q4

REPORT INFORMATION
  Report Type: Spontaneous
  Country: NZ (occurrence: NZ)
  Receive Date: 20180521
  Receipt Date: 20201026
  Transmission Date: 20210113
  Serious: Yes (Other)
  Sender: FDA-Public Use
  Company Number: NZ-MYLANLABS-2016M1042402

PATIENT
  Age: 47 Year
  Sex: Male

DRUGS (1)
  1. CLOZARIL [Suspect]
     Active Substance: CLOZAPINE
     Indication: SCHIZOPHRENIA
     Dosage: UNK
     Route: 048
     Dates: start: 19990914, end: 2016

REACTIONS (9)
  - Mean cell haemoglobin decreased [Unknown]
  - Platelet count increased [Unknown]
  - White blood cell count increased [Recovering/Resolving]
  - Haemorrhage [Unknown]
  - Inflammation [Unknown]
  - Infection [Unknown]
  - Neutrophil count increased [Not Recovered/Not Resolved]
  - Iron deficiency [Unknown]
  - Monocyte count increased [Unknown]

NARRATIVE: CASE EVENT DATE: 20131106
